FAERS Safety Report 7733136-8 (Version None)
Quarter: 2011Q3

REPORT INFORMATION
  Report Type: 
  Country: None (occurrence: None)
  Receive Date: 20110907
  Receipt Date: 20110905
  Transmission Date: 20111222
  Serious: Yes (Other)
  Sender: FDA-Public Use
  Company Number: PHHY2011IN78706

PATIENT
  Age: 61 Year
  Sex: Female

DRUGS (1)
  1. ZOLEDRONOC ACID [Suspect]
     Indication: OSTEOPOROSIS
     Dosage: 5 MG, UNK
     Route: 042
     Dates: start: 20110504

REACTIONS (8)
  - MYALGIA [None]
  - RESTLESSNESS [None]
  - HEADACHE [None]
  - RENAL HYPERTENSION [None]
  - FATIGUE [None]
  - BLOOD PRESSURE INCREASED [None]
  - ALBUMIN URINE PRESENT [None]
  - CHILLS [None]
